FAERS Safety Report 5160366-4 (Version None)
Quarter: 2006Q4

REPORT INFORMATION
  Report Type: 
  Country: None (occurrence: None)
  Receive Date: 20061121
  Receipt Date: 20061110
  Transmission Date: 20070319
  Serious: Yes (Hospitalization, Other)
  Sender: FDA-Public Use
  Company Number: US-2006-022423

PATIENT
  Age: 70 Year
  Sex: Male

DRUGS (7)
  1. FLUDARA [Suspect]
     Dosage: 50MG/DAYX5 DAYS, INTRAVENOUS
     Route: 042
     Dates: start: 20060525, end: 20060529
  2. METOPROLOL TARTRATE [Concomitant]
  3. COZAAR [Concomitant]
  4. FLOMAX MR ^YANAOUCHI^ (TAMSULOSIN HYDROCHLORIDE) [Concomitant]
  5. ASPIRIN [Concomitant]
  6. LASIX [Concomitant]
  7. ALDACTONE [Concomitant]

REACTIONS (10)
  - AGGRESSION [None]
  - AGITATION [None]
  - CONFUSIONAL STATE [None]
  - DELUSION [None]
  - ENCEPHALOPATHY [None]
  - LEUKOPENIA [None]
  - PYREXIA [None]
  - REFUSAL OF TREATMENT BY PATIENT [None]
  - RENAL IMPAIRMENT [None]
  - THROMBOCYTOPENIA [None]
